FAERS Safety Report 14583665 (Version 6)
Quarter: 2018Q3

REPORT INFORMATION
  Report Type: Report from Study
  Country: US (occurrence: US)
  Receive Date: 20180228
  Receipt Date: 20180727
  Transmission Date: 20181010
  Serious: Yes (Death, Hospitalization)
  Sender: FDA-Public Use
  Company Number: US-ACTELION-A-US2018-168228

PATIENT
  Age: 53 Year
  Sex: Female
  Weight: 71.2 kg

DRUGS (2)
  1. VELETRI [Suspect]
     Active Substance: EPOPROSTENOL
     Indication: PULMONARY ARTERIAL HYPERTENSION
     Dosage: 20 NG/KG, PER MIN
     Route: 042
     Dates: start: 201312
  2. XARELTO [Concomitant]
     Active Substance: RIVAROXABAN

REACTIONS (11)
  - Pulmonary hypertension [Unknown]
  - Chronic respiratory failure [Unknown]
  - Catheter management [Unknown]
  - Paracentesis [Unknown]
  - Death [Fatal]
  - Resuscitation [Unknown]
  - Loss of consciousness [Unknown]
  - Respiratory failure [Unknown]
  - Right ventricular failure [Unknown]
  - Disease complication [Unknown]
  - Hypoxia [Unknown]

NARRATIVE: CASE EVENT DATE: 20180718
